FAERS Safety Report 15831822 (Version 2)
Quarter: 2019Q1

REPORT INFORMATION
  Report Type: Report from Study
  Country: US (occurrence: US)
  Receive Date: 20190116
  Receipt Date: 20190221
  Transmission Date: 20190417
  Serious: Yes (Hospitalization, Other)
  Sender: FDA-Public Use
  Company Number: US-ROCHE-2243703

PATIENT
  Age: 78 Year
  Sex: Male

DRUGS (2)
  1. BEVACIZUMAB. [Suspect]
     Active Substance: BEVACIZUMAB
     Indication: NEOPLASM
     Route: 042
  2. ATEZOLIZUMAB. [Suspect]
     Active Substance: ATEZOLIZUMAB
     Indication: NEOPLASM
     Route: 042

REACTIONS (2)
  - Back pain [Not Recovered/Not Resolved]
  - Spinal cord compression [Unknown]

NARRATIVE: CASE EVENT DATE: 20181226
